FAERS Safety Report 5722519-3 (Version None)
Quarter: 2008Q2

REPORT INFORMATION
  Report Type: 
  Country: None (occurrence: None)
  Receive Date: 20080429
  Receipt Date: 20070705
  Transmission Date: 20081010
  Serious: No
  Sender: FDA-Public Use
  Company Number: US-ASTRAZENECA-2007UW15805

PATIENT
  Age: 58 Year
  Sex: Female
  Weight: 70.3 kg

DRUGS (9)
  1. NEXIUM [Suspect]
     Indication: HIATUS HERNIA
     Route: 048
     Dates: start: 20010101
  2. NEXIUM [Suspect]
     Indication: GASTROOESOPHAGEAL REFLUX DISEASE
     Route: 048
     Dates: start: 20010101
  3. NEXIUM [Suspect]
     Dosage: PRN
     Route: 048
     Dates: start: 20070101
  4. NEXIUM [Suspect]
     Dosage: PRN
     Route: 048
     Dates: start: 20070101
  5. DIOVAN [Concomitant]
  6. SYNTHROID [Concomitant]
  7. ADVAIR HFA [Concomitant]
  8. SINGULAIR [Concomitant]
  9. CLARITIN [Concomitant]

REACTIONS (1)
  - IMPAIRED GASTRIC EMPTYING [None]
